FAERS Safety Report 6527892-4 (Version None)
Quarter: 2010Q1

REPORT INFORMATION
  Report Type: 
  Country: None (occurrence: None)
  Receive Date: 20100106
  Receipt Date: 20100105
  Transmission Date: 20100710
  Serious: Yes (Hospitalization, Disabling, Other)
  Sender: FDA-Public Use
  Company Number: US-ROXANE LABORATORIES, INC.-2009-RO-00980RO

PATIENT
  Sex: Male
  Weight: 68 kg

DRUGS (22)
  1. PREDNISONE [Suspect]
     Indication: DERMATITIS ATOPIC
  2. PREDNISONE [Suspect]
     Dosage: 20 MG
  3. PREDNISONE [Suspect]
  4. CRESTOR [Concomitant]
     Indication: BLOOD CHOLESTEROL INCREASED
     Dosage: 20 MG
     Dates: start: 20071001
  5. RECLAST [Concomitant]
     Indication: OSTEOPOROSIS
  6. CELEBREX [Concomitant]
     Indication: OSTEOPOROSIS
     Dates: start: 20091002
  7. AMITRIPTYLINE [Concomitant]
     Indication: OSTEOPOROSIS
     Dosage: 25 MG
     Dates: start: 20090908
  8. NEXIUM [Concomitant]
     Indication: GASTROOESOPHAGEAL REFLUX DISEASE
     Dosage: 40 MG
     Dates: start: 20070601
  9. XYZAL [Concomitant]
  10. OXYCODONE HCL AND ACETAMINOPHEN [Concomitant]
     Indication: PAIN
  11. HYDROCODONE BITARTRATE AND ACETAMINOPHEN [Concomitant]
     Indication: PAIN
  12. LUNESTA [Concomitant]
  13. EQUATE MEN'S HEALTH FORMULA [Concomitant]
  14. CALCIUM 600 + D [Concomitant]
  15. CEPHALEXIN [Concomitant]
     Dosage: 1500 MG
  16. LIPITOR [Concomitant]
     Dosage: 40 MG
  17. SKELAXIN [Concomitant]
     Dosage: 2400 MG
  18. PERCOCET [Concomitant]
  19. PREVACID [Concomitant]
  20. ALBUTEROL [Concomitant]
  21. MULTI-VITAMIN [Concomitant]
  22. VITAMIN C [Concomitant]

REACTIONS (31)
  - ANAEMIA POSTOPERATIVE [None]
  - ARTHRITIS [None]
  - BACK PAIN [None]
  - BONE DENSITY ABNORMAL [None]
  - CARDIOMEGALY [None]
  - CONSTIPATION [None]
  - DENTAL CARIES [None]
  - DISABILITY [None]
  - FOOT FRACTURE [None]
  - HIP ARTHROPLASTY [None]
  - HIP DEFORMITY [None]
  - IMPAIRED WORK ABILITY [None]
  - INSOMNIA [None]
  - INTERVERTEBRAL DISC DEGENERATION [None]
  - INTERVERTEBRAL DISC PROTRUSION [None]
  - MUSCULAR WEAKNESS [None]
  - OSTEONECROSIS [None]
  - OSTEOPOROSIS [None]
  - PAIN [None]
  - PALPITATIONS [None]
  - PARAESTHESIA [None]
  - POSTOPERATIVE FEVER [None]
  - RADICULITIS [None]
  - RESPIRATORY DISTRESS [None]
  - RIB FRACTURE [None]
  - SOFT TISSUE DISORDER [None]
  - SPINAL FRACTURE [None]
  - STRESS FRACTURE [None]
  - THIRST [None]
  - VISION BLURRED [None]
  - WHEEZING [None]
